FAERS Safety Report 23770139 (Version 1)
Quarter: 2024Q2

REPORT INFORMATION
  Report Type: Spontaneous
  Country: US (occurrence: US)
  Receive Date: 20240422
  Receipt Date: 20240422
  Transmission Date: 20240716
  Serious: No
  Sender: FDA-Public Use
  Company Number: US-ELI_LILLY_AND_COMPANY-US202404012009

PATIENT
  Age: 60 Year

DRUGS (3)
  1. TIRZEPATIDE [Suspect]
     Active Substance: TIRZEPATIDE
     Indication: Diabetes mellitus
     Dosage: UNK UNK, UNKNOWN
     Route: 065
  2. POTASSIUM [Concomitant]
     Active Substance: POTASSIUM
     Indication: Product used for unknown indication
     Dosage: UNK
  3. METFORMIN [Concomitant]
     Active Substance: METFORMIN HYDROCHLORIDE
     Indication: Product used for unknown indication
     Dosage: UNK UNK, DAILY

REACTIONS (13)
  - Pain in extremity [Unknown]
  - Joint stiffness [Unknown]
  - Dry mouth [Unknown]
  - Muscular weakness [Unknown]
  - Gait disturbance [Unknown]
  - Limb discomfort [Unknown]
  - Feeling abnormal [Unknown]
  - Musculoskeletal stiffness [Unknown]
  - Product tampering [Unknown]
  - Abdominal pain upper [Unknown]
  - Constipation [Unknown]
  - Dyspepsia [Unknown]
  - Decreased appetite [Unknown]
